FAERS Safety Report 9589931 (Version 1)
Quarter: 2013Q4

REPORT INFORMATION
  Report Type: Spontaneous
  Country: US (occurrence: US)
  Receive Date: 20131003
  Receipt Date: 20131003
  Transmission Date: 20140711
  Serious: No
  Sender: FDA-Public Use
  Company Number: US-AMGEN-USASP2012074388

PATIENT
  Age: 61 Year
  Sex: Female

DRUGS (3)
  1. ENBREL [Suspect]
     Indication: PRODUCT USED FOR UNKNOWN INDICATION
     Dosage: 50 MG, QWK
     Route: 058
     Dates: start: 20051017
  2. FLAGYL                             /00012501/ [Concomitant]
     Dosage: UNK
  3. CIPROFLOXACIN [Concomitant]
     Dosage: UNK

REACTIONS (3)
  - Kidney infection [Unknown]
  - Malaise [Unknown]
  - Pneumonia [Unknown]
